FAERS Safety Report 16740005 (Version 1)
Quarter: 2019Q3

REPORT INFORMATION
  Report Type: Spontaneous
  Country: US (occurrence: US)
  Receive Date: 20190826
  Receipt Date: 20190826
  Transmission Date: 20191005
  Serious: No
  Sender: FDA-Public Use
  Company Number: US-MYLANLABS-2019M1075890

PATIENT
  Sex: Female

DRUGS (1)
  1. SULINDAC TABLETS, USP [Suspect]
     Active Substance: SULINDAC
     Indication: POLYP
     Dosage: 150 MILLIGRAM, BID
     Route: 048
     Dates: start: 201810

REACTIONS (4)
  - Joint swelling [Recovered/Resolved]
  - Blood pressure increased [Not Recovered/Not Resolved]
  - Abdominal pain upper [Recovered/Resolved]
  - Off label use [Not Recovered/Not Resolved]

NARRATIVE: CASE EVENT DATE: 2019
